FAERS Safety Report 19212473 (Version 1)
Quarter: 2021Q2

REPORT INFORMATION
  Report Type: Spontaneous
  Country: US (occurrence: US)
  Receive Date: 20210504
  Receipt Date: 20210504
  Transmission Date: 20210717
  Serious: Yes (Death)
  Sender: FDA-Public Use
  Company Number: None

PATIENT
  Sex: Female

DRUGS (2)
  1. VORICONAZOLE. [Suspect]
     Active Substance: VORICONAZOLE
     Indication: THYROID CANCER
     Route: 048
     Dates: start: 20210212, end: 20210430
  2. LENVIMA [Concomitant]
     Active Substance: LENVATINIB
     Dates: start: 20200409, end: 20210430

REACTIONS (1)
  - Death [None]
